FAERS Safety Report 12816267 (Version 1)
Quarter: 2016Q4

REPORT INFORMATION
  Report Type: Spontaneous
  Country: PL (occurrence: PL)
  Receive Date: 20161006
  Receipt Date: 20161006
  Transmission Date: 20170207
  Serious: Yes (Death, Other)
  Sender: FDA-Public Use
  Company Number: PL-TEVA-698447ACC

PATIENT
  Age: 65 Year
  Sex: Male

DRUGS (5)
  1. LENALIDOMIDE [Concomitant]
     Active Substance: LENALIDOMIDE
     Indication: DISEASE PROGRESSION
     Dosage: 10 MILLIGRAM DAILY;
     Route: 065
     Dates: start: 20160830, end: 20160909
  2. DARATUMUMAB [Suspect]
     Active Substance: DARATUMUMAB
     Indication: PLASMA CELL MYELOMA
     Dosage: 16 MG/KG (1300MG), CYCLIC 1 IN 1 WEEK FROM WEEK 1 TO 8 AND EVERY 2 WEEKS FROM 9 TO 11
     Route: 042
     Dates: start: 20160209, end: 20160524
  3. VELCADE [Concomitant]
     Active Substance: BORTEZOMIB
     Indication: DISEASE PROGRESSION
     Dosage: 0.7 MG/M2, (DAYS 1, 4, 8)
     Route: 065
     Dates: start: 20160901, end: 20160909
  4. BENDAMUSTINE HYDROCHLORIDE. [Suspect]
     Active Substance: BENDAMUSTINE HYDROCHLORIDE
     Indication: PLASMA CELL MYELOMA
     Dosage: (5 CYCLES)
     Route: 042
  5. CYCLOPHOSPHAMIDE. [Concomitant]
     Active Substance: CYCLOPHOSPHAMIDE
     Indication: DISEASE PROGRESSION
     Dosage: 50 MG, UNKNOWN FREQ.(EVERY SECOND DAY)
     Route: 065
     Dates: start: 20160912, end: 20160916

REACTIONS (2)
  - Drug resistance [Unknown]
  - Plasma cell myeloma recurrent [Fatal]

NARRATIVE: CASE EVENT DATE: 20160920
